FAERS Safety Report 12585912 (Version 3)
Quarter: 2016Q3

REPORT INFORMATION
  Report Type: Report from Study
  Country: JP (occurrence: JP)
  Receive Date: 20160725
  Receipt Date: 20160812
  Transmission Date: 20161109
  Serious: Yes (Death, Hospitalization)
  Sender: FDA-Public Use
  Company Number: JP-ACTELION-A-CH2016-139456

PATIENT
  Age: 67 Year
  Sex: Male

DRUGS (16)
  1. OPSUMIT [Suspect]
     Active Substance: MACITENTAN
     Dosage: 10 MG, OD
     Route: 048
     Dates: start: 20160121, end: 20160327
  2. URSODEOXYCHOLIC ACID [Concomitant]
     Active Substance: URSODIOL
  3. LOPERAMIDE [Concomitant]
     Active Substance: LOPERAMIDE
  4. VORICONAZOLE. [Concomitant]
     Active Substance: VORICONAZOLE
  5. MAGNESIUM OXIDE. [Concomitant]
     Active Substance: MAGNESIUM OXIDE
  6. CARBOCISTEINE [Concomitant]
     Active Substance: CARBOCYSTEINE
  7. OPSUMIT [Suspect]
     Active Substance: MACITENTAN
     Dosage: 5 MG, OD
     Route: 048
     Dates: start: 20160118, end: 20160120
  8. RILMAZAFONE HYDROCHLORIDE [Concomitant]
     Active Substance: RILMAZAFONE HYDROCHLORIDE
  9. METOCLOPRAMIDE. [Concomitant]
     Active Substance: METOCLOPRAMIDE
  10. OXYGEN. [Concomitant]
     Active Substance: OXYGEN
  11. OPSUMIT [Suspect]
     Active Substance: MACITENTAN
     Indication: PULMONARY ARTERIAL HYPERTENSION
     Dosage: 2.5 MG, OD
     Route: 048
     Dates: start: 20160115, end: 20160117
  12. ALLOPURINOL. [Concomitant]
     Active Substance: ALLOPURINOL
  13. AZOSEMIDE [Concomitant]
     Active Substance: AZOSEMIDE
  14. SILDENAFIL CITRATE. [Concomitant]
     Active Substance: SILDENAFIL CITRATE
  15. CLOSTRIDIUM BUTYRICUM [Concomitant]
     Active Substance: CLOSTRIDIUM BUTYRICUM SPORES STRAIN M-55
  16. TAZOBACTAM SODIUM [Concomitant]
     Active Substance: TAZOBACTAM SODIUM

REACTIONS (4)
  - Idiopathic pulmonary fibrosis [Fatal]
  - Hypoxia [Fatal]
  - Pulmonary hypertension [Fatal]
  - Enterocolitis [Recovering/Resolving]

NARRATIVE: CASE EVENT DATE: 20160315
